FAERS Safety Report 7597385-4 (Version None)
Quarter: 2011Q3

REPORT INFORMATION
  Report Type: 
  Country: None (occurrence: None)
  Receive Date: 20110708
  Receipt Date: 20110624
  Transmission Date: 20111222
  Serious: Yes (Disabling)
  Sender: FDA-Public Use
  Company Number: PHHY2011US57287

PATIENT
  Sex: Female
  Weight: 103 kg

DRUGS (8)
  1. DIOVAN [Concomitant]
     Indication: BLOOD PRESSURE
     Dosage: DAILY
     Route: 048
  2. TOPAMAX [Concomitant]
     Indication: MIGRAINE
     Dosage: DAILY
     Route: 048
  3. HYOSCYAMINE [Concomitant]
  4. RECLAST [Suspect]
     Indication: OSTEOPOROSIS
     Dosage: YEARLY ONCE
     Route: 042
     Dates: start: 20110621, end: 20110621
  5. TRAZODONE HCL [Concomitant]
     Indication: SLEEP DISORDER
  6. BUSPAN [Concomitant]
     Indication: ANXIETY
     Dosage: DAILY
     Route: 048
  7. CALCIUM CARBONATE [Concomitant]
  8. VITAMIN D [Concomitant]

REACTIONS (14)
  - NECK PAIN [None]
  - MUSCULOSKELETAL STIFFNESS [None]
  - LOCAL SWELLING [None]
  - PAIN [None]
  - INFLUENZA LIKE ILLNESS [None]
  - VOMITING [None]
  - ARTHRITIS [None]
  - NAUSEA [None]
  - ERYTHEMA [None]
  - PAIN IN EXTREMITY [None]
  - DISCOMFORT [None]
  - FEELING HOT [None]
  - DIARRHOEA [None]
  - CHILLS [None]
